FAERS Safety Report 21764602 (Version 2)
Quarter: 2022Q4

REPORT INFORMATION
  Report Type: Report from Study
  Country: US (occurrence: US)
  Receive Date: 20221222
  Receipt Date: 20221228
  Transmission Date: 20230113
  Serious: Yes (Other)
  Sender: FDA-Public Use
  Company Number: US-ABBVIE-4245160

PATIENT
  Age: 44 Year
  Sex: Female

DRUGS (1)
  1. HUMIRA [Suspect]
     Active Substance: ADALIMUMAB
     Indication: Hidradenitis
     Dosage: CF?FORM STRENGTH: 40MG
     Route: 058
     Dates: start: 20220725, end: 20221212

REACTIONS (5)
  - Medical procedure [Unknown]
  - Impaired healing [Not Recovered/Not Resolved]
  - Pain in extremity [Unknown]
  - Infection [Unknown]
  - Limb injury [Not Recovered/Not Resolved]

NARRATIVE: CASE EVENT DATE: 20221101
